FAERS Safety Report 8031506-4 (Version None)
Quarter: 2011Q4

REPORT INFORMATION
  Report Type: 
  Country: None (occurrence: None)
  Receive Date: 20111201
  Receipt Date: 20110301
  Transmission Date: 20120403
  Serious: Yes (Other)
  Sender: FDA-Public Use
  Company Number: 2011SP009572

PATIENT
  Age: 64 Year
  Sex: Female

DRUGS (5)
  1. CLARITIN [Concomitant]
  2. VENTOLIN [Concomitant]
  3. STEROID [Concomitant]
  4. SINGULAIR [Concomitant]
  5. NASONEX [Suspect]
     Indication: MULTIPLE ALLERGIES
     Dosage: 2 DF;QAM;INH
     Route: 055
     Dates: start: 20010101, end: 20110225

REACTIONS (6)
  - GLAUCOMA [None]
  - BLOOD GLUCOSE INCREASED [None]
  - EPISTAXIS [None]
  - CATARACT [None]
  - ASTHMA [None]
  - COUGH [None]
